FAERS Safety Report 7926662-X (Version None)
Quarter: 2011Q4

REPORT INFORMATION
  Report Type: 
  Country: None (occurrence: None)
  Receive Date: 20111118
  Receipt Date: 20111110
  Transmission Date: 20120403
  Serious: Yes (Hospitalization)
  Sender: FDA-Public Use
  Company Number: US-PAR PHARMACEUTICAL, INC-2011SCPR003406

PATIENT

DRUGS (1)
  1. MEGACE ES [Suspect]
     Indication: PRODUCT USED FOR UNKNOWN INDICATION
     Dosage: UNK UNK, UNKNOWN
     Route: 048
     Dates: start: 20111105, end: 20111106

REACTIONS (2)
  - BREATH SOUNDS ABNORMAL [None]
  - UNRESPONSIVE TO STIMULI [None]
